FAERS Safety Report 22539272 (Version 5)
Quarter: 2025Q3

REPORT INFORMATION
  Report Type: Spontaneous
  Country: US (occurrence: US)
  Receive Date: 20230609
  Receipt Date: 20250904
  Transmission Date: 20251020
  Serious: Yes (Other)
  Sender: PFIZER
  Company Number: US-PFIZER INC-PV202300101950

PATIENT
  Age: 63 Year
  Sex: Female
  Weight: 59.87 kg

DRUGS (1)
  1. PREMARIN [Suspect]
     Active Substance: ESTROGENS, CONJUGATED
     Indication: Hormone level abnormal
     Dosage: 0.5 G, 2X/WEEK

REACTIONS (8)
  - Knee arthroplasty [Unknown]
  - Hysterotomy [Unknown]
  - Hysterectomy [Unknown]
  - Cystocele [Unknown]
  - Scoliosis [Unknown]
  - Sinus pain [Unknown]
  - Expired product administered [Unknown]
  - Wrong technique in product usage process [Unknown]

NARRATIVE: CASE EVENT DATE: 20230627
